FAERS Safety Report 9865130 (Version 2)
Quarter: 2014Q1

REPORT INFORMATION
  Report Type: Spontaneous
  Country: DE (occurrence: DE)
  Receive Date: 20140203
  Receipt Date: 20140210
  Transmission Date: 20141002
  Serious: Yes (Other)
  Sender: FDA-Public Use
  Company Number: DE-AMGEN-DEUSP2014006765

PATIENT
  Age: 56 Year
  Sex: Male

DRUGS (10)
  1. VECTIBIX [Suspect]
     Indication: COLORECTAL CANCER
     Dosage: 520 MG, Q2WK
     Route: 042
     Dates: start: 20130724, end: 20140121
  2. VECTIBIX [Suspect]
     Dosage: UNK
     Route: 065
  3. FOLINIC ACID [Concomitant]
     Indication: COLORECTAL CANCER METASTATIC
     Dosage: UNK UNK, Q2WK
     Route: 042
     Dates: start: 20130724, end: 20140121
  4. FOLINIC ACID [Concomitant]
     Indication: COLORECTAL CANCER
  5. FLUOROURACIL [Concomitant]
     Indication: COLORECTAL CANCER METASTATIC
     Dosage: UNK UNK, Q2WK
     Route: 042
     Dates: start: 20130724, end: 20140121
  6. FLUOROURACIL [Concomitant]
     Indication: COLORECTAL CANCER
  7. OXALIPLATIN [Concomitant]
     Indication: COLORECTAL CANCER METASTATIC
     Dosage: UNK
  8. MINOCYCLINE [Concomitant]
     Indication: PROPHYLAXIS
     Dosage: 2X 50 MG/DAY
     Route: 048
     Dates: start: 20130722, end: 20140204
  9. MINOCYCLINE [Concomitant]
     Indication: RASH
  10. IRINOTECAN [Concomitant]
     Indication: COLORECTAL CANCER
     Dosage: UNK UNK, Q2WK
     Route: 042
     Dates: start: 20130724, end: 20140121

REACTIONS (3)
  - Wound [Recovered/Resolved]
  - Wound secretion [Recovered/Resolved]
  - Dry skin [Unknown]
